FAERS Safety Report 8405758-2 (Version None)
Quarter: 2012Q2

REPORT INFORMATION
  Report Type: 
  Country: None (occurrence: None)
  Receive Date: 20120604
  Receipt Date: 20120516
  Transmission Date: 20120825
  Serious: Yes (Other)
  Sender: FDA-Public Use
  Company Number: CH-RANBAXY-2012RR-56900

PATIENT
  Age: 22 Year
  Sex: Female

DRUGS (3)
  1. VENLAFAXINE [Suspect]
     Indication: AFFECTIVE DISORDER
     Dosage: 150 MG, QD
     Route: 048
     Dates: start: 20120101
  2. NAPROXEN [Suspect]
     Indication: PAIN
     Dosage: 25 MG, BID
     Route: 048
     Dates: start: 20120327, end: 20120403
  3. AMOXICILLIN [Concomitant]
     Indication: TOOTH DISORDER
     Dosage: 125 MG, TID
     Route: 048
     Dates: start: 20120327, end: 20120403

REACTIONS (2)
  - MATERNAL EXPOSURE DURING PREGNANCY [None]
  - SELF-MEDICATION [None]
